FAERS Safety Report 9275403 (Version 1)
Quarter: 2013Q2

REPORT INFORMATION
  Report Type: Spontaneous
  Country: US (occurrence: US)
  Receive Date: 20130507
  Receipt Date: 20130507
  Transmission Date: 20140414
  Serious: No
  Sender: FDA-Public Use
  Company Number: US-PFIZER INC-2013136286

PATIENT
  Sex: Male

DRUGS (1)
  1. TORISEL [Suspect]
     Indication: METASTATIC RENAL CELL CARCINOMA
     Dosage: UNK

REACTIONS (5)
  - Disease progression [Unknown]
  - Metastatic renal cell carcinoma [Unknown]
  - Rash maculo-papular [Unknown]
  - Dry skin [Unknown]
  - Pruritus [Unknown]
